FAERS Safety Report 7684212-X (Version None)
Quarter: 2011Q3

REPORT INFORMATION
  Report Type: 
  Country: None (occurrence: None)
  Receive Date: 20110815
  Receipt Date: 20110314
  Transmission Date: 20111222
  Serious: Yes (Other)
  Sender: FDA-Public Use
  Company Number: US-MERCK-1108USA01599

PATIENT
  Age: 71 Year
  Sex: Male

DRUGS (2)
  1. PROSCAR [Suspect]
     Indication: PROSTATOMEGALY
     Route: 065
  2. PROTONIX [Concomitant]
     Indication: OESOPHAGITIS
     Route: 065
     Dates: start: 20101201

REACTIONS (2)
  - PROSTATIC SPECIFIC ANTIGEN INCREASED [None]
  - PRODUCT QUALITY ISSUE [None]
